FAERS Safety Report 12627375 (Version 1)
Quarter: 2016Q3

REPORT INFORMATION
  Report Type: Report from Study
  Country: US (occurrence: US)
  Receive Date: 20160805
  Receipt Date: 20160805
  Transmission Date: 20161109
  Serious: No
  Sender: FDA-Public Use
  Company Number: US-AMGEN-USASL2015129311

PATIENT
  Age: 47 Year
  Sex: Female
  Weight: 77.98 kg

DRUGS (14)
  1. AMOXICILLIN. [Concomitant]
     Active Substance: AMOXICILLIN
     Indication: BRONCHITIS
     Dosage: UNK UNK, BID
     Route: 048
  2. ASTELIN [Concomitant]
     Active Substance: AZELASTINE HYDROCHLORIDE
     Indication: HYPERSENSITIVITY
     Dosage: UNK UNK, BID
  3. ATROVENT [Concomitant]
     Active Substance: IPRATROPIUM BROMIDE
     Indication: ASTHMA
     Dosage: UNK
     Route: 045
  4. NPLATE [Suspect]
     Active Substance: ROMIPLOSTIM
     Dosage: 80 MUG, QWK
     Route: 030
     Dates: start: 20151007, end: 20151015
  5. NPLATE [Suspect]
     Active Substance: ROMIPLOSTIM
     Dosage: 325 MUG, QWK
     Route: 030
     Dates: start: 20160218
  6. PREDNISONE. [Suspect]
     Active Substance: PREDNISONE
     Indication: IMMUNE THROMBOCYTOPENIC PURPURA
     Dosage: 3 MG, UNK
     Route: 048
  7. ATIVAN [Concomitant]
     Active Substance: LORAZEPAM
     Indication: SLEEP DISORDER
     Dosage: 2 MG, UNK
     Route: 048
  8. NPLATE [Suspect]
     Active Substance: ROMIPLOSTIM
     Indication: THROMBOCYTOPENIA
     Dosage: 1 MUG/KG, UNK
     Route: 065
     Dates: start: 20151007
  9. SYMBICORT [Concomitant]
     Active Substance: BUDESONIDE\FORMOTEROL FUMARATE DIHYDRATE
     Indication: ASTHMA
     Dosage: 2 PUFFS BID, PRN
     Route: 050
  10. NPLATE [Suspect]
     Active Substance: ROMIPLOSTIM
     Dosage: 245 MUG, QWK
     Route: 030
     Dates: start: 20151217, end: 20160211
  11. XOPENEX [Concomitant]
     Active Substance: LEVALBUTEROL HYDROCHLORIDE
     Indication: ASTHMA
     Dosage: 2 PUFFS, AS NECESSARY
  12. NPLATE [Suspect]
     Active Substance: ROMIPLOSTIM
     Dosage: 145 MUG, QWK
     Route: 030
     Dates: start: 20151022, end: 20151210
  13. QVAR [Concomitant]
     Active Substance: BECLOMETHASONE DIPROPIONATE
     Indication: ASTHMA
     Dosage: UNK UNK, BID
  14. SINGULAIR [Concomitant]
     Active Substance: MONTELUKAST SODIUM
     Indication: ASTHMA
     Dosage: 10 MG, UNK
     Route: 048

REACTIONS (15)
  - Blood glucose decreased [Recovering/Resolving]
  - Lethargy [Unknown]
  - Pain [Unknown]
  - Myalgia [Unknown]
  - Flushing [Unknown]
  - Erythema [Recovered/Resolved]
  - Incorrect route of drug administration [Unknown]
  - Pain in extremity [Unknown]
  - Sports injury [Unknown]
  - Injection site pain [Unknown]
  - Fatigue [Not Recovered/Not Resolved]
  - Feeling hot [Recovered/Resolved]
  - Weight decreased [Unknown]
  - Headache [Recovered/Resolved]
  - Platelet count decreased [Unknown]

NARRATIVE: CASE EVENT DATE: 201510
